FAERS Safety Report 23143652 (Version 1)
Quarter: 2023Q4

REPORT INFORMATION
  Report Type: Spontaneous
  Country: GB (occurrence: GB)
  Receive Date: 20231103
  Receipt Date: 20231103
  Transmission Date: 20240109
  Serious: Yes (Hospitalization)
  Sender: FDA-Public Use
  Company Number: None

PATIENT
  Sex: Female

DRUGS (3)
  1. METHOTREXATE [Suspect]
     Active Substance: METHOTREXATE
     Indication: Adverse drug reaction
     Dosage: 5MG ONCE A WEEK;
     Route: 065
     Dates: end: 20231001
  2. METHOTREXATE [Suspect]
     Active Substance: METHOTREXATE
     Indication: Psoriatic arthropathy
  3. TRIMETHOPRIM [Suspect]
     Active Substance: TRIMETHOPRIM
     Indication: Urinary tract infection
     Dosage: 400 MILLIGRAM DAILY; 200MG BD, DURATION: 1 DAYS
     Route: 065
     Dates: start: 20231009, end: 20231010

REACTIONS (3)
  - Acute kidney injury [Recovered/Resolved]
  - Neutropenia [Recovering/Resolving]
  - Medication error [Unknown]

NARRATIVE: CASE EVENT DATE: 20231011
